FAERS Safety Report 25231285 (Version 3)
Quarter: 2025Q2

REPORT INFORMATION
  Report Type: Spontaneous
  Country: US (occurrence: US)
  Receive Date: 20250423
  Receipt Date: 20250505
  Transmission Date: 20250717
  Serious: Yes (Life-Threatening, Other)
  Sender: PFIZER
  Company Number: US-PFIZER INC-PV202500045476

PATIENT
  Age: 63 Year
  Sex: Female

DRUGS (2)
  1. PANTOPRAZOLE [Suspect]
     Active Substance: PANTOPRAZOLE
     Indication: Gastrooesophageal reflux disease
     Dosage: UNK, 2X/DAY (TWICE DAILY/EVERY 12 HOURS)
  2. CARAFATE [Concomitant]
     Active Substance: SUCRALFATE
     Indication: Gastric polyps

REACTIONS (2)
  - Gastric polyps [Recovered/Resolved]
  - Off label use [Unknown]
